FAERS Safety Report 5031252-5 (Version None)
Quarter: 2006Q2

REPORT INFORMATION
  Report Type: 
  Country: None (occurrence: None)
  Receive Date: 20060615
  Receipt Date: 20060509
  Transmission Date: 20061013
  Serious: Yes (Hospitalization)
  Sender: FDA-Public Use
  Company Number: FR200606002477

PATIENT
  Age: 82 Year
  Sex: Female

DRUGS (3)
  1. FORSTEO (TERIPARATIDE) PEN, DISPOSABLE [Suspect]
     Indication: OSTEOPOROSIS
     Dosage: 20 UG DAILY (1/D) SUBCUTANEOUS
     Route: 058
     Dates: start: 20060420, end: 20060506
  2. FORTEO PEN (250 MCG/ML) (FORTEO PEN 250 MCG/ML) [Concomitant]
  3. MORPHINE SULFATE [Concomitant]

REACTIONS (3)
  - DEPRESSED MOOD [None]
  - PAIN [None]
  - PNEUMONIA STAPHYLOCOCCAL [None]
